FAERS Safety Report 12134707 (Version 1)
Quarter: 2016Q1

REPORT INFORMATION
  Report Type: Spontaneous
  Country: FI (occurrence: FI)
  Receive Date: 20160301
  Receipt Date: 20160301
  Transmission Date: 20160526
  Serious: Yes (Other)
  Sender: FDA-Public Use
  Company Number: FI-IGI LABORATORIES, INC.-1048538

PATIENT
  Age: 92 Year
  Sex: Female

DRUGS (1)
  1. ZINACEF [Suspect]
     Active Substance: CEFUROXIME SODIUM
     Indication: PULMONARY FIBROSIS
     Dates: start: 201311

REACTIONS (5)
  - Diarrhoea [Recovered/Resolved]
  - Femur fracture [Recovered/Resolved]
  - General physical health deterioration [Recovered/Resolved]
  - Fall [Recovered/Resolved]
  - Hallucination [None]

NARRATIVE: CASE EVENT DATE: 2013
